FAERS Safety Report 14276284 (Version 9)
Quarter: 2018Q3

REPORT INFORMATION
  Report Type: Report from Study
  Country: JP (occurrence: JP)
  Receive Date: 20171212
  Receipt Date: 20180717
  Transmission Date: 20181010
  Serious: Yes (Death, Other)
  Sender: FDA-Public Use
  Company Number: JP-AMGEN-JPNNI2017184318

PATIENT
  Age: 67 Year
  Sex: Male
  Weight: 70 kg

DRUGS (7)
  1. EVOLOCUMAB [Suspect]
     Active Substance: EVOLOCUMAB
     Indication: TYPE IIA HYPERLIPIDAEMIA
     Dosage: 140 MG, Q2WK
     Route: 058
     Dates: start: 20170527, end: 20171207
  2. AVAPRO [Concomitant]
     Active Substance: IRBESARTAN
     Dosage: 50 MG, QD
     Route: 048
     Dates: end: 20171205
  3. MAINTATE [Concomitant]
     Active Substance: BISOPROLOL FUMARATE
     Dosage: 0.625 MG, QD
     Route: 048
     Dates: end: 20170831
  4. TAKECAB [Concomitant]
     Active Substance: VONOPRAZAN FUMURATE
     Indication: PROPHYLAXIS
     Dosage: 10 MG, QD
     Route: 048
     Dates: end: 20171205
  5. CRESTOR [Concomitant]
     Active Substance: ROSUVASTATIN CALCIUM
     Dosage: 10 (5 MG X 2 TABLETS) MG, QD
     Route: 048
     Dates: start: 201703, end: 20171204
  6. XARELTO [Concomitant]
     Active Substance: RIVAROXABAN
     Indication: PROPHYLAXIS
     Dosage: 15 MG, QD
     Route: 048
     Dates: end: 20171205
  7. XARELTO [Concomitant]
     Active Substance: RIVAROXABAN
     Indication: ATRIAL FIBRILLATION

REACTIONS (2)
  - Arteriosclerosis [Not Recovered/Not Resolved]
  - Cerebral infarction [Fatal]

NARRATIVE: CASE EVENT DATE: 2017
